FAERS Safety Report 11355104 (Version 1)
Quarter: 2015Q3

REPORT INFORMATION
  Report Type: Spontaneous
  Country: US (occurrence: US)
  Receive Date: 20150807
  Receipt Date: 20150807
  Transmission Date: 20151125
  Serious: Yes (Hospitalization, Congenital Anomaly, Other)
  Sender: FDA-Public Use
  Company Number: US-PFIZER INC-2015256524

PATIENT
  Sex: Male
  Weight: 3 kg

DRUGS (6)
  1. EFFEXOR XR [Suspect]
     Active Substance: VENLAFAXINE HYDROCHLORIDE
     Dosage: 150 MG, 2X/DAY
     Route: 064
     Dates: start: 20050211
  2. ZYRTEC [Concomitant]
     Active Substance: CETIRIZINE HYDROCHLORIDE
     Dosage: 10 MG, 1X/DAY
     Route: 064
     Dates: start: 20051006
  3. ACETAMINOPHEN, CODEINE [Concomitant]
     Dosage: 1 DF, AS NEEDED (EVERY 4 HOURS TO 6 HOURS)
     Route: 064
     Dates: start: 20050616
  4. PROMETHAZINE [Concomitant]
     Active Substance: PROMETHAZINE\PROMETHAZINE HYDROCHLORIDE
     Dosage: 25 MG, AS NEEDED (EVERY 4 HOURS TO 6 HOURS)
     Route: 064
     Dates: start: 20050616
  5. HYDROCODONE/APAP [Concomitant]
     Active Substance: ACETAMINOPHEN\HYDROCODONE BITARTRATE
     Dosage: 5 MG/ 500 MG, EVERY 4 HRS (AS NEEDED)
     Route: 064
     Dates: start: 20050728
  6. EFFEXOR XR [Suspect]
     Active Substance: VENLAFAXINE HYDROCHLORIDE
     Dosage: 300 MG, DAILY (150 MG TWO CAPSULES)
     Route: 064
     Dates: start: 20050309

REACTIONS (8)
  - Anaemia neonatal [Unknown]
  - Neonatal respiratory distress syndrome [Unknown]
  - Maternal exposure during pregnancy [Unknown]
  - Arachnoid cyst [Unknown]
  - Congenital central nervous system anomaly [Unknown]
  - Ventricular septal defect [Unknown]
  - Premature baby [Unknown]
  - Spina bifida occulta [Unknown]

NARRATIVE: CASE EVENT DATE: 20051205
